FAERS Safety Report 9450552 (Version 1)
Quarter: 2013Q3

REPORT INFORMATION
  Report Type: Spontaneous
  Country: US (occurrence: US)
  Receive Date: 20130809
  Receipt Date: 20130809
  Transmission Date: 20140515
  Serious: Yes (Hospitalization, Other)
  Sender: FDA-Public Use
  Company Number: US-PFIZER INC-2013230639

PATIENT
  Age: 53 Year
  Sex: Female
  Weight: 77.1 kg

DRUGS (5)
  1. LYRICA [Suspect]
     Indication: FIBROMYALGIA
     Dosage: 50 MG, 2X/DAY
     Route: 048
     Dates: start: 201206
  2. ACETYLSALICYLIC ACID [Suspect]
     Indication: PAIN
     Dosage: UNK
  3. DEMEROL [Suspect]
     Indication: PAIN
     Dosage: UNK
  4. SYNTHROID [Concomitant]
     Indication: THYROID DISORDER
     Dosage: 200 UG, 1X/DAY
  5. NORVASC [Concomitant]
     Indication: HEART RATE IRREGULAR
     Dosage: UNK

REACTIONS (8)
  - Road traffic accident [Unknown]
  - Rhinitis [Recovered/Resolved]
  - Malaise [Recovered/Resolved]
  - Reading disorder [Unknown]
  - Bedridden [Unknown]
  - Myopia [Unknown]
  - Drug ineffective [Unknown]
  - Muscle disorder [Unknown]
